FAERS Safety Report 24816178 (Version 1)
Quarter: 2025Q1

REPORT INFORMATION
  Report Type: Spontaneous
  Country: FR (occurrence: FR)
  Receive Date: 20250107
  Receipt Date: 20250107
  Transmission Date: 20250409
  Serious: Yes (Hospitalization)
  Sender: PFIZER
  Company Number: None

PATIENT
  Age: 70 Year
  Sex: Male
  Weight: 77 kg

DRUGS (22)
  1. CYTARABINE [Suspect]
     Active Substance: CYTARABINE
     Indication: Acute myeloid leukaemia
     Dosage: 200MG/M2/J IVSE D1 TO D7
     Route: 042
     Dates: start: 20241119, end: 20241125
  2. IDARUBICIN HYDROCHLORIDE [Suspect]
     Active Substance: IDARUBICIN HYDROCHLORIDE
     Indication: Acute myeloid leukaemia
     Route: 042
     Dates: start: 20241119, end: 20241121
  3. ONDANSETRON [Concomitant]
     Active Substance: ONDANSETRON
     Indication: Prophylaxis of nausea and vomiting
     Dosage: 8 MG, 1X/DAY
     Route: 048
     Dates: start: 20241119, end: 20241125
  4. METOCLOPRAMIDE [Concomitant]
     Active Substance: METOCLOPRAMIDE
     Indication: Prophylaxis of nausea and vomiting
     Route: 048
     Dates: start: 20241120, end: 20241127
  5. CEFEPIME HYDROCHLORIDE [Concomitant]
     Active Substance: CEFEPIME HYDROCHLORIDE
     Indication: Febrile bone marrow aplasia
     Route: 042
     Dates: start: 20241113, end: 20241113
  6. CEFEPIME HYDROCHLORIDE [Concomitant]
     Active Substance: CEFEPIME HYDROCHLORIDE
     Dosage: 2G/8H EN CONTINU, IV, A 20HPDT 7J
     Route: 042
     Dates: start: 20241113, end: 20241120
  7. METRONIDAZOLE [Concomitant]
     Active Substance: METRONIDAZOLE
     Indication: Febrile bone marrow aplasia
     Dosage: 1 TABLET MORNING, NOON AND EVENING FOR 7 DAYS
     Route: 048
     Dates: start: 20241113, end: 20241120
  8. NOXAFIL [Concomitant]
     Active Substance: POSACONAZOLE
     Indication: Prophylactic chemotherapy
     Dosage: 300 MG IN EVENING
     Route: 048
     Dates: start: 20241114, end: 20241202
  9. PRAVASTATIN [Concomitant]
     Active Substance: PRAVASTATIN
     Dosage: 1 TABLET IN THE EVENING FOR 1 MONTH
     Route: 048
     Dates: start: 20241114
  10. INDAPAMIDE\PERINDOPRIL ERBUMINE [Concomitant]
     Active Substance: INDAPAMIDE\PERINDOPRIL ERBUMINE
     Indication: Hypertension
     Dosage: 1 TABLET IN THE MORNING
     Route: 048
  11. EZETIMIBE [Concomitant]
     Active Substance: EZETIMIBE
     Dosage: 1 TABLET IN EVENING
     Route: 048
  12. AMIODARONE [Concomitant]
     Active Substance: AMIODARONE
     Indication: Atrial fibrillation
     Dosage: 1 TABLET EVERY MONDAY, WEDNESDAY AND FRIDAY
     Route: 048
     Dates: end: 20241121
  13. PANTOPRAZOLE [Concomitant]
     Active Substance: PANTOPRAZOLE
     Indication: Gastrooesophageal reflux disease
     Dosage: 1 TABLET IN THE EVENING
     Route: 048
     Dates: start: 20241114
  14. SODIUM ALGINATE\SODIUM BICARBONATE [Concomitant]
     Active Substance: SODIUM ALGINATE\SODIUM BICARBONATE
     Indication: Gastrooesophageal reflux disease
     Dosage: 1 SACHET IN THE MORNING, NOON AND EVENING
     Route: 048
  15. PROPRANOLOL [Concomitant]
     Active Substance: PROPRANOLOL HYDROCHLORIDE
     Indication: Atrial fibrillation
     Dosage: 1 TABLET IN THE MORNING
     Route: 048
     Dates: start: 20241119
  16. VALACYCLOVIR HYDROCHLORIDE [Concomitant]
     Active Substance: VALACYCLOVIR HYDROCHLORIDE
     Indication: Herpes simplex
     Dosage: 1 TABLET MORNING AND EVENING
     Route: 048
     Dates: start: 20241113, end: 20241202
  17. NEFOPAM [Concomitant]
     Active Substance: NEFOPAM
     Indication: Pain
     Dosage: 20 MG, IV, IF REQUIRED FOR 1 WEEK; MAX PER 24H: 120MG
     Route: 042
     Dates: start: 20241120
  18. TRAMADOL [Concomitant]
     Active Substance: TRAMADOL
     Indication: Pain
     Dosage: 1 TABLET AS NEEDED
     Route: 048
     Dates: start: 20241120
  19. PREDNISONE [Concomitant]
     Active Substance: PREDNISONE
     Dosage: 4 TABLETS IN MORNING FOR 2 WEEKS
     Route: 048
     Dates: start: 20241123, end: 20241202
  20. VITAMIN K [Concomitant]
     Active Substance: PHYTONADIONE
     Indication: Vitamin K deficiency
     Dosage: 1 VIAL IN THE MORNING EVERY MONDAY, WEDNESDAY AND FRIDAY
     Route: 048
     Dates: start: 20241114
  21. SODIUM BICARBONATE [Concomitant]
     Active Substance: SODIUM BICARBONATE
     Indication: Mucosal inflammation
     Dosage: 1 MOUTHWASH EVERY 4H - DAILY
     Route: 048
     Dates: start: 20241113
  22. MELATONIN [Concomitant]
     Active Substance: MELATONIN
     Indication: Insomnia
     Dosage: 1 TABLET IN EVENING
     Route: 048
     Dates: start: 20241114

REACTIONS (1)
  - Cardiac dysfunction [Not Recovered/Not Resolved]

NARRATIVE: CASE EVENT DATE: 20241206
